FAERS Safety Report 10309587 (Version 2)
Quarter: 2014Q3

REPORT INFORMATION
  Report Type: Spontaneous
  Country: JP (occurrence: JP)
  Receive Date: 20140717
  Receipt Date: 20140717
  Transmission Date: 20150326
  Serious: Yes (Other)
  Sender: FDA-Public Use
  Company Number: JP-UCBSA-2014005704

PATIENT
  Age: 55 Year
  Sex: Female

DRUGS (6)
  1. INTEBAN [Suspect]
     Active Substance: INDOMETHACIN
     Dosage: UNK
     Route: 054
     Dates: start: 20140609
  2. REZALTAS [Concomitant]
     Active Substance: AZELNIDIPINE\OLMESARTAN MEDOXOMIL
     Route: 048
  3. TEGRETOL [Concomitant]
     Active Substance: CARBAMAZEPINE
     Dosage: 200 MG, ONCE DAILY (QD)
     Route: 048
  4. ARTIST [Concomitant]
     Active Substance: CARVEDILOL
     Dosage: UNK, 1 DF
     Route: 048
  5. KEPPRA [Suspect]
     Active Substance: LEVETIRACETAM
     Indication: EPILEPSY
     Dosage: 1000 MG, ONCE DAILY (QD)
     Route: 048
  6. NATRIX [Concomitant]
     Active Substance: INDAPAMIDE
     Dosage: 1 DF
     Route: 048

REACTIONS (1)
  - Pancytopenia [Recovered/Resolved]
